FAERS Safety Report 7902719-4 (Version None)
Quarter: 2011Q4

REPORT INFORMATION
  Report Type: 
  Country: None (occurrence: None)
  Receive Date: 20111109
  Receipt Date: 20111102
  Transmission Date: 20120403
  Serious: Yes (Other)
  Sender: FDA-Public Use
  Company Number: NL-BRISTOL-MYERS SQUIBB COMPANY-16212219

PATIENT
  Age: 79 Year
  Sex: Male

DRUGS (8)
  1. CELECOXIB [Concomitant]
  2. RITUXIMAB [Suspect]
     Dosage: INJ
     Dates: start: 20110216
  3. PARACETAMOL [Concomitant]
  4. LOMUSTINE [Suspect]
     Dosage: INJ
     Dates: start: 20110216
  5. PREDNISONE [Suspect]
     Dates: start: 20110216
  6. TRAMADOL HCL [Concomitant]
  7. ETOPOSIDE [Suspect]
     Dates: start: 20110216
  8. CHLORAMBUCIL [Suspect]
     Dates: start: 20110216

REACTIONS (1)
  - MYOPATHY [None]
